FAERS Safety Report 6597930-1 (Version None)
Quarter: 2010Q1

REPORT INFORMATION
  Report Type: 
  Country: None (occurrence: None)
  Receive Date: 20100223
  Receipt Date: 20100107
  Transmission Date: 20100710
  Serious: No
  Sender: FDA-Public Use
  Company Number: US-ALLERGAN-0916969US

PATIENT
  Age: 38 Year
  Sex: Female

DRUGS (6)
  1. BOTOX COSMETIC [Suspect]
     Indication: SKIN WRINKLING
     Dosage: 50 UNK, UNK
     Route: 030
     Dates: start: 20091101, end: 20091101
  2. BOTOX COSMETIC [Suspect]
     Dosage: 45 UNITS, SINGLE
     Route: 030
     Dates: start: 20091208, end: 20091208
  3. ASPIRIN [Concomitant]
  4. WELLBUTRIN [Concomitant]
  5. NEURONTIN [Concomitant]
  6. BACTRIM [Concomitant]

REACTIONS (2)
  - DRUG INEFFECTIVE [None]
  - URTICARIA [None]
